FAERS Safety Report 5846416-8 (Version None)
Quarter: 2008Q3

REPORT INFORMATION
  Report Type: 
  Country: None (occurrence: None)
  Receive Date: 20080815
  Receipt Date: 20080806
  Transmission Date: 20090109
  Serious: Yes (Other)
  Sender: FDA-Public Use
  Company Number: US-JNJFOC-20080801467

PATIENT
  Age: 37 Year
  Sex: Female

DRUGS (5)
  1. REMICADE [Suspect]
     Route: 042
  2. REMICADE [Suspect]
     Indication: RHEUMATOID ARTHRITIS
     Route: 042
  3. METHOTREXATE [Concomitant]
  4. BENADRYL [Concomitant]
     Indication: PREMEDICATION
  5. TYLENOL [Concomitant]
     Indication: PREMEDICATION

REACTIONS (4)
  - DYSPHAGIA [None]
  - INFUSION RELATED REACTION [None]
  - LIVEDO RETICULARIS [None]
  - TREMOR [None]
